FAERS Safety Report 6855015-0 (Version None)
Quarter: 2010Q3

REPORT INFORMATION
  Report Type: 
  Country: None (occurrence: None)
  Receive Date: 20100717
  Receipt Date: 20080512
  Transmission Date: 20110219
  Serious: Yes (Other)
  Sender: FDA-Public Use
  Company Number: US-PFIZER INC-2007101373

PATIENT
  Sex: Male
  Weight: 74.8 kg

DRUGS (1)
  1. CHANTIX [Suspect]
     Indication: SMOKING CESSATION THERAPY
     Dates: start: 20071118, end: 20071127

REACTIONS (2)
  - HEADACHE [None]
  - PAIN IN EXTREMITY [None]
